FAERS Safety Report 25592378 (Version 1)
Quarter: 2025Q3

REPORT INFORMATION
  Report Type: Spontaneous
  Country: US (occurrence: US)
  Receive Date: 20250722
  Receipt Date: 20250722
  Transmission Date: 20251020
  Serious: Yes (Hospitalization, Other)
  Sender: BIOMARIN
  Company Number: US-BIOMARINAP-US-2025-167486

PATIENT
  Age: 31 Year
  Sex: Female

DRUGS (2)
  1. PALYNZIQ [Suspect]
     Active Substance: PEGVALIASE-PQPZ
     Indication: Phenylketonuria
     Dosage: UNK, QD
  2. PALYNZIQ [Suspect]
     Active Substance: PEGVALIASE-PQPZ

REACTIONS (2)
  - Anaphylactic reaction [Recovered/Resolved with Sequelae]
  - Dyspnoea [Recovered/Resolved with Sequelae]
